FAERS Safety Report 7384304-9 (Version None)
Quarter: 2011Q1

REPORT INFORMATION
  Report Type: 
  Country: None (occurrence: None)
  Receive Date: 20110330
  Receipt Date: 20110322
  Transmission Date: 20110831
  Serious: Yes (Hospitalization, Other)
  Sender: FDA-Public Use
  Company Number: US-SANOFI-AVENTIS-2011SA018194

PATIENT
  Age: 58 Year
  Sex: Male

DRUGS (4)
  1. LANTUS [Suspect]
     Indication: TYPE 2 DIABETES MELLITUS
     Dosage: DOSE:36 UNIT(S)
     Route: 058
     Dates: start: 20110204
  2. SOLOSTAR [Suspect]
     Dates: start: 20110204
  3. ORAL BLOOD GLUCOSE LOWERING DRUGS [Concomitant]
  4. AMARYL [Suspect]
     Indication: TYPE 2 DIABETES MELLITUS
     Route: 065

REACTIONS (2)
  - PULMONARY EMBOLISM [None]
  - BLOOD GLUCOSE INCREASED [None]
